FAERS Safety Report 11749089 (Version 2)
Quarter: 2015Q4

REPORT INFORMATION
  Report Type: Spontaneous
  Country: JP (occurrence: JP)
  Receive Date: 20151118
  Receipt Date: 20151215
  Transmission Date: 20160304
  Serious: Yes (Hospitalization)
  Sender: FDA-Public Use
  Company Number: JP-ROCHE-1661541

PATIENT
  Age: 13 Year
  Sex: Female
  Weight: 33.05 kg

DRUGS (6)
  1. XOLAIR [Suspect]
     Active Substance: OMALIZUMAB
     Dosage: DOSE INCREASED
     Route: 058
  2. SALMETEROL XINAFOATE/FLUTICASONE PROPIONATE [Concomitant]
     Active Substance: FLUTICASONE PROPIONATE\SALMETEROL XINAFOATE
     Route: 065
  3. MONTELUKAST [Concomitant]
     Active Substance: MONTELUKAST SODIUM
  4. XOLAIR [Suspect]
     Active Substance: OMALIZUMAB
     Indication: ASTHMA
     Route: 058
  5. CICLESONIDE [Concomitant]
     Active Substance: CICLESONIDE
     Route: 065
  6. SUPLATAST TOSILATE [Concomitant]
     Active Substance: SUPLATAST TOSILATE

REACTIONS (1)
  - Asthma [Recovering/Resolving]
